FAERS Safety Report 24072554 (Version 3)
Quarter: 2024Q3

REPORT INFORMATION
  Report Type: Spontaneous
  Country: JP (occurrence: JP)
  Receive Date: 20240710
  Receipt Date: 20240808
  Transmission Date: 20241016
  Serious: Yes (Other)
  Sender: JOHNSON AND JOHNSON
  Company Number: JP-JNJFOC-20240723061

PATIENT
  Age: 69 Year
  Sex: Male

DRUGS (15)
  1. DARATUMUMAB [Suspect]
     Active Substance: DARATUMUMAB
     Indication: Plasma cell myeloma
     Dosage: DOSE UNKNOWN
     Route: 058
     Dates: start: 20230316, end: 20231011
  2. DARATUMUMAB [Suspect]
     Active Substance: DARATUMUMAB
     Dosage: DOSE UNKNOWN
     Route: 058
     Dates: start: 20231115
  3. VELCADE [Suspect]
     Active Substance: BORTEZOMIB
     Indication: Plasma cell myeloma
     Dosage: DAY1, 4, 8, 11
     Route: 065
     Dates: start: 20230117, end: 20230301
  4. REVLIMID [Concomitant]
     Active Substance: LENALIDOMIDE
     Dosage: DAY1-14
     Route: 048
     Dates: start: 20230117, end: 20230301
  5. REVLIMID [Concomitant]
     Active Substance: LENALIDOMIDE
     Dosage: DOSE UNKNOWN
     Route: 048
     Dates: start: 20230308
  6. REVLIMID [Concomitant]
     Active Substance: LENALIDOMIDE
     Dosage: DOSE UNKNOWN
     Route: 048
     Dates: start: 20230316, end: 20231011
  7. REVLIMID [Concomitant]
     Active Substance: LENALIDOMIDE
     Dosage: DOSE UNKNOWN
     Route: 048
     Dates: start: 20231115
  8. DEXAMETHASONE [Concomitant]
     Active Substance: DEXAMETHASONE
     Dosage: DAY1, 2, 4, 5, 8, 9, 11, 12
     Route: 065
     Dates: start: 20230117, end: 20230301
  9. DEXAMETHASONE [Concomitant]
     Active Substance: DEXAMETHASONE
     Dosage: DOSE UNKNOWN
     Route: 065
     Dates: start: 20230316, end: 20231011
  10. DEXAMETHASONE [Concomitant]
     Active Substance: DEXAMETHASONE
     Dosage: DOSE UNKNOWN
     Route: 065
     Dates: start: 20231115
  11. PREDNISOLONE [Concomitant]
     Active Substance: PREDNISOLONE
     Route: 065
     Dates: start: 20230402, end: 20230405
  12. PREDNISOLONE [Concomitant]
     Active Substance: PREDNISOLONE
     Route: 065
     Dates: start: 20230409, end: 20230411
  13. SULFAMETHOXAZOLE\TRIMETHOPRIM [Concomitant]
     Active Substance: SULFAMETHOXAZOLE\TRIMETHOPRIM
     Dosage: DOSE UNKNOWN
     Route: 065
     Dates: end: 202301
  14. ATOVAQUONE [Concomitant]
     Active Substance: ATOVAQUONE
     Dosage: DOSE UNKNOWN
     Route: 065
     Dates: start: 202301
  15. PLERIXAFOR [Concomitant]
     Active Substance: PLERIXAFOR
     Dosage: DOSE UNKNOWN
     Route: 065
     Dates: start: 20230613, end: 20230614

REACTIONS (4)
  - Alanine aminotransferase increased [Unknown]
  - Rash [Unknown]
  - Pyrexia [Unknown]
  - Influenza virus test positive [Unknown]

NARRATIVE: CASE EVENT DATE: 20230101
